FAERS Safety Report 25476085 (Version 1)
Quarter: 2025Q2

REPORT INFORMATION
  Report Type: Spontaneous
  Country: CN (occurrence: CN)
  Receive Date: 20250625
  Receipt Date: 20250625
  Transmission Date: 20250717
  Serious: Yes (Hospitalization, Other)
  Sender: Norvium Bioscience
  Company Number: CN-Norvium Bioscience LLC-080295

PATIENT
  Age: 33 Year
  Sex: Male
  Weight: 54 kg

DRUGS (2)
  1. GEMCITABINE [Suspect]
     Active Substance: GEMCITABINE
     Indication: Pancreatic carcinoma metastatic
  2. PACLITAXEL [Suspect]
     Active Substance: PACLITAXEL
     Indication: Pancreatic carcinoma metastatic

REACTIONS (6)
  - Leukopenia [Recovered/Resolved]
  - Seizure [Recovered/Resolved]
  - Disease progression [Unknown]
  - Brain neoplasm [Unknown]
  - Adenocarcinoma [Unknown]
  - Lymphangiosis carcinomatosa [Unknown]
